FAERS Safety Report 20889963 (Version 2)
Quarter: 2022Q3

REPORT INFORMATION
  Report Type: Spontaneous
  Country: JP (occurrence: JP)
  Receive Date: 20220530
  Receipt Date: 20220812
  Transmission Date: 20221027
  Serious: Yes (Other)
  Sender: FDA-Public Use
  Company Number: JP-NOVARTISPH-NVSJ2022JP090801

PATIENT
  Age: 0 Year

DRUGS (6)
  1. XOLAIR [Suspect]
     Active Substance: OMALIZUMAB
     Indication: Foetal exposure during pregnancy
     Dosage: 150 MG
     Route: 064
     Dates: start: 20210306
  2. XOLAIR [Suspect]
     Active Substance: OMALIZUMAB
     Dosage: UNK
     Route: 064
     Dates: start: 202106
  3. GLYCOPYRROLATE\INDACATEROL\MOMETASONE FUROATE [Suspect]
     Active Substance: GLYCOPYRROLATE\INDACATEROL\MOMETASONE FUROATE
     Indication: Foetal exposure during pregnancy
     Dosage: 1DF:INDACATEROL 150UG, GLYCOPYRRONIUM 50UG, MOMETASONE FUROATE 160UG
     Route: 064
     Dates: start: 20210417, end: 20210819
  4. MONTELUKAST SODIUM [Concomitant]
     Active Substance: MONTELUKAST SODIUM
     Indication: Foetal exposure during pregnancy
     Dosage: 10 MG
     Route: 064
     Dates: start: 202003
  5. DESLORATADINE [Concomitant]
     Active Substance: DESLORATADINE
     Indication: Foetal exposure during pregnancy
     Dosage: 5 MG
     Route: 064
     Dates: start: 202012
  6. SUPLATAST TOSILATE [Concomitant]
     Active Substance: SUPLATAST TOSILATE
     Indication: Foetal exposure during pregnancy
     Dosage: 300 MG
     Route: 064
     Dates: start: 202011

REACTIONS (2)
  - Premature baby [Unknown]
  - Foetal exposure during pregnancy [Unknown]

NARRATIVE: CASE EVENT DATE: 20210927
